FAERS Safety Report 9468636 (Version 1)
Quarter: 2013Q3

REPORT INFORMATION
  Report Type: Spontaneous
  Country: US (occurrence: US)
  Receive Date: 20130821
  Receipt Date: 20130821
  Transmission Date: 20140515
  Serious: Yes (Other)
  Sender: FDA-Public Use
  Company Number: US-BRISTOL-MYERS SQUIBB COMPANY-19184043

PATIENT
  Age: 48 Year
  Sex: Male
  Weight: 99.77 kg

DRUGS (1)
  1. BYDUREON [Suspect]
     Indication: TYPE 2 DIABETES MELLITUS
     Dosage: LAST INJECTION ON 31MAY13
     Route: 058
     Dates: start: 20130329

REACTIONS (8)
  - Syncope [Unknown]
  - Blood glucose fluctuation [Unknown]
  - Dyspnoea [Unknown]
  - Chest pain [Unknown]
  - Headache [Unknown]
  - Weight decreased [Unknown]
  - Injection site mass [Recovering/Resolving]
  - Hypoaesthesia [Unknown]
